FAERS Safety Report 9103346 (Version 2)
Quarter: 2013Q1

REPORT INFORMATION
  Report Type: Spontaneous
  Country: DE (occurrence: DE)
  Receive Date: 20130218
  Receipt Date: 20130312
  Transmission Date: 20140127
  Serious: Yes (Life-Threatening, Hospitalization, Other)
  Sender: FDA-Public Use
  Company Number: DE-ROCHE-1185089

PATIENT
  Age: 65 Year
  Sex: Female
  Weight: 62 kg

DRUGS (6)
  1. AVASTIN [Suspect]
     Indication: LUNG NEOPLASM MALIGNANT
     Route: 042
     Dates: start: 20120315, end: 20121123
  2. ZOSTEX [Concomitant]
     Indication: HERPES VIRUS INFECTION
     Route: 065
     Dates: start: 20121113, end: 20121119
  3. CONCOR [Concomitant]
     Indication: ARRHYTHMIA
     Route: 048
     Dates: start: 201205
  4. THYRONAJOD [Concomitant]
     Indication: HYPOTHYROIDISM
     Route: 048
     Dates: start: 2008, end: 201301
  5. THYRONAJOD [Concomitant]
     Route: 048
     Dates: start: 201301
  6. SPIRIVA [Concomitant]
     Indication: CHRONIC OBSTRUCTIVE PULMONARY DISEASE
     Route: 055
     Dates: start: 201108

REACTIONS (3)
  - Appendicitis perforated [Recovered/Resolved]
  - Peritonitis [Recovered/Resolved]
  - Liver function test abnormal [Recovered/Resolved]
